FAERS Safety Report 5928460-5 (Version None)
Quarter: 2008Q4

REPORT INFORMATION
  Report Type: 
  Country: None (occurrence: None)
  Receive Date: 20081020
  Receipt Date: 20081006
  Transmission Date: 20090506
  Serious: Yes (Hospitalization)
  Sender: FDA-Public Use
  Company Number: 230002M08NOR

PATIENT
  Age: 43 Year
  Sex: Male

DRUGS (1)
  1. REBIF [Suspect]
     Dosage: 44 MG, 1 IN 1 WEEKS, SUNBCUTANEOUS
     Route: 058
     Dates: start: 20060401, end: 20071101

REACTIONS (2)
  - CHRONIC LEUKAEMIA [None]
  - WHITE BLOOD CELL COUNT INCREASED [None]
